FAERS Safety Report 25767767 (Version 1)
Quarter: 2025Q3

REPORT INFORMATION
  Report Type: Spontaneous
  Country: JP (occurrence: JP)
  Receive Date: 20250905
  Receipt Date: 20250905
  Transmission Date: 20251021
  Serious: Yes (Death, Hospitalization, Other)
  Sender: Vantive US Healthcare
  Company Number: JP-VANTIVE-2025VAN003672

PATIENT
  Age: 9 Decade
  Sex: Male

DRUGS (2)
  1. REGUNEAL LCA [Suspect]
     Active Substance: CALCIUM CHLORIDE\DEXTROSE MONOHYDRATE\HYDROCHLORIC ACID\MAGNESIUM CHLORIDE\SODIUM BICARBONATE\SODIUM
     Indication: Peritoneal dialysis
     Route: 033
     Dates: start: 20150224, end: 20250520
  2. REGUNEAL LCA [Suspect]
     Active Substance: CALCIUM CHLORIDE\DEXTROSE MONOHYDRATE\HYDROCHLORIC ACID\MAGNESIUM CHLORIDE\SODIUM BICARBONATE\SODIUM
     Indication: Peritoneal lavage
     Route: 033

REACTIONS (2)
  - Neoplasm malignant [Fatal]
  - Gastrointestinal carcinoma [Fatal]
